FAERS Safety Report 8595297-0 (Version None)
Quarter: 2012Q3

REPORT INFORMATION
  Report Type: 
  Country: None (occurrence: None)
  Receive Date: 20120815
  Receipt Date: 20120702
  Transmission Date: 20120928
  Serious: Yes (Other)
  Sender: FDA-Public Use
  Company Number: JP-009507513-1206USA04781

PATIENT

DRUGS (8)
  1. METHISTA [Suspect]
     Indication: CHRONIC SINUSITIS
     Dosage: UNK
     Route: 048
     Dates: start: 20110501
  2. TRANEXAMIC ACID [Suspect]
     Indication: CHRONIC SINUSITIS
     Dosage: UNK
     Dates: start: 20110501
  3. AVELOX [Concomitant]
     Indication: CHRONIC SINUSITIS
     Route: 048
  4. ALLEGRA [Suspect]
     Indication: CHRONIC SINUSITIS
     Dosage: UNK
     Route: 048
     Dates: start: 20110501
  5. SINGULAIR [Suspect]
     Indication: CHRONIC SINUSITIS
     Dosage: 10 MG, QD
     Route: 048
     Dates: start: 20110501, end: 20110601
  6. FLUTICASONE FUROATE [Suspect]
     Indication: CHRONIC SINUSITIS
     Dosage: UNK
     Route: 045
     Dates: start: 20110501
  7. CLARITH [Concomitant]
     Indication: CHRONIC SINUSITIS
  8. [THERAPY UNSPECIFIED] [Suspect]
     Indication: CHRONIC SINUSITIS
     Dosage: UNK
     Dates: start: 20110501

REACTIONS (1)
  - DRUG ERUPTION [None]
